FAERS Safety Report 15729509 (Version 4)
Quarter: 2019Q2

REPORT INFORMATION
  Report Type: Spontaneous
  Country: PR (occurrence: PR)
  Receive Date: 20181217
  Receipt Date: 20190607
  Transmission Date: 20190711
  Serious: No
  Sender: FDA-Public Use
  Company Number: PR-PFIZER INC-2018512801

PATIENT
  Age: 75 Year
  Sex: Female
  Weight: 55 kg

DRUGS (2)
  1. IBRANCE [Suspect]
     Active Substance: PALBOCICLIB
     Indication: BREAST CANCER FEMALE
     Dosage: 75 MG, CYCLIC (1CAP/DAILY 1-21DAYS/I CAP DAILY X 21 DAYS / 7 OFF)
     Route: 048
     Dates: start: 20181214
  2. IBRANCE [Suspect]
     Active Substance: PALBOCICLIB
     Dosage: 75 MG, CYCLIC (21 DAYS ON/7 DAYS OFF)
     Route: 048
     Dates: start: 20181218

REACTIONS (5)
  - Abdominal discomfort [Unknown]
  - Pruritus [Unknown]
  - Rash [Not Recovered/Not Resolved]
  - Urticaria [Not Recovered/Not Resolved]
  - Dry skin [Unknown]

NARRATIVE: CASE EVENT DATE: 20190107
